FAERS Safety Report 24007303 (Version 1)
Quarter: 2024Q2

REPORT INFORMATION
  Report Type: Spontaneous
  Country: JP (occurrence: JP)
  Receive Date: 20240624
  Receipt Date: 20240624
  Transmission Date: 20240716
  Serious: Yes (Hospitalization, Other)
  Sender: FDA-Public Use
  Company Number: JP-BRISTOL-MYERS SQUIBB COMPANY-2024-100177

PATIENT
  Age: 7 Decade
  Sex: Male

DRUGS (12)
  1. LENADEX [Suspect]
     Active Substance: DEXAMETHASONE ACETATE
     Indication: Plasma cell myeloma
     Dates: end: 201910
  2. LENADEX [Suspect]
     Active Substance: DEXAMETHASONE ACETATE
     Dates: start: 201910, end: 20191117
  3. POMALYST [Suspect]
     Active Substance: POMALIDOMIDE
     Indication: Plasma cell myeloma
     Dates: start: 20180111, end: 20180125
  4. POMALYST [Suspect]
     Active Substance: POMALIDOMIDE
     Dosage: 3 WEEKS 1 DAY OFF
     Dates: start: 20180125, end: 201910
  5. POMALYST [Suspect]
     Active Substance: POMALIDOMIDE
     Dosage: 20MG/WEEK 1?4MG/WEEK 1
     Dates: start: 201910, end: 20191117
  6. ATORVASTATIN [Concomitant]
     Active Substance: ATORVASTATIN
     Indication: Product used for unknown indication
  7. VALSARTAN [Concomitant]
     Active Substance: VALSARTAN
     Indication: Product used for unknown indication
  8. PROCATEROL HYDROCHLORIDE [Concomitant]
     Active Substance: PROCATEROL HYDROCHLORIDE
     Indication: Product used for unknown indication
  9. RABEPRAZOLE SODIUM [Concomitant]
     Active Substance: RABEPRAZOLE SODIUM
     Indication: Product used for unknown indication
  10. LOXOPROFEN SODIUM DIHYDRATE [Concomitant]
     Active Substance: LOXOPROFEN SODIUM DIHYDRATE
     Indication: Product used for unknown indication
  11. SHAKUYAKUKANZOTO [Concomitant]
     Active Substance: HERBALS
     Indication: Product used for unknown indication
  12. ASPIRIN [Concomitant]
     Active Substance: ASPIRIN
     Indication: Product used for unknown indication

REACTIONS (14)
  - Abdominal distension [Unknown]
  - Rash [Unknown]
  - Oedema peripheral [Unknown]
  - Weight increased [Unknown]
  - Peripheral swelling [Unknown]
  - Grip strength decreased [Unknown]
  - Bronchopulmonary aspergillosis [Unknown]
  - Plasma cell myeloma [Recovering/Resolving]
  - Infection [Unknown]
  - Constipation [Unknown]
  - Anaemia [Unknown]
  - Thrombosis [Unknown]
  - General physical condition abnormal [Unknown]
  - Tremor [Unknown]

NARRATIVE: CASE EVENT DATE: 20180101
